FAERS Safety Report 9412528 (Version 1)
Quarter: 2013Q3

REPORT INFORMATION
  Report Type: Spontaneous
  Country: JP (occurrence: JP)
  Receive Date: 20130722
  Receipt Date: 20130722
  Transmission Date: 20140515
  Serious: Yes (Other)
  Sender: FDA-Public Use
  Company Number: JP-009507513-1307JPN011569

PATIENT
  Sex: 0

DRUGS (3)
  1. PEGINTRON POWDER FOR INJECTION 100MICROG [Suspect]
     Dosage: 100 MICROGRAM, QW
     Route: 058
  2. REBETOL [Suspect]
     Dosage: 400 MG, BID
     Route: 048
  3. TELAVIC [Suspect]
     Dosage: 500 MG, TID
     Route: 048

REACTIONS (1)
  - Pancreatitis acute [Unknown]
